FAERS Safety Report 8258483-5 (Version None)
Quarter: 2012Q2

REPORT INFORMATION
  Report Type: 
  Country: None (occurrence: None)
  Receive Date: 20120404
  Receipt Date: 20120327
  Transmission Date: 20120825
  Serious: Yes (Other)
  Sender: FDA-Public Use
  Company Number: US-BAYER-2011-110740

PATIENT
  Age: 32 Year
  Sex: Female

DRUGS (1)
  1. MIRENA [Suspect]
     Indication: CONTRACEPTION
     Dosage: 20 MCG/24HR, CONT
     Route: 015
     Dates: start: 20111109, end: 20111122

REACTIONS (8)
  - MOOD ALTERED [None]
  - DEPRESSION [None]
  - IRRITABILITY [None]
  - VAGINAL HAEMORRHAGE [None]
  - STARING [None]
  - APATHY [None]
  - FEELING ABNORMAL [None]
  - DISCOMFORT [None]
